FAERS Safety Report 17883145 (Version 1)
Quarter: 2020Q2

REPORT INFORMATION
  Report Type: Spontaneous
  Country: NO (occurrence: NO)
  Receive Date: 20200611
  Receipt Date: 20200611
  Transmission Date: 20200714
  Serious: Yes (Life-Threatening)
  Sender: FDA-Public Use
  Company Number: NO-009507513-2006NOR003498

PATIENT
  Age: 28 Year
  Sex: Female
  Weight: 80 kg

DRUGS (2)
  1. NEXPLANON [Suspect]
     Active Substance: ETONOGESTREL
     Indication: CONTRACEPTION
     Dosage: IMPLANTED UNDER THE SKIN AND WORKS FOR THREE YEARS
     Dates: start: 20200415
  2. FIASP [Concomitant]
     Active Substance: INSULIN ASPART
     Dosage: UNK
     Dates: start: 20070101

REACTIONS (2)
  - Depression [Not Recovered/Not Resolved]
  - Suicidal ideation [Not Recovered/Not Resolved]

NARRATIVE: CASE EVENT DATE: 20200430
